FAERS Safety Report 17865497 (Version 5)
Quarter: 2020Q3

REPORT INFORMATION
  Report Type: Spontaneous
  Country: DE (occurrence: DE)
  Receive Date: 20200605
  Receipt Date: 20200714
  Transmission Date: 20201103
  Serious: Yes (Life-Threatening, Hospitalization, Other)
  Sender: FDA-Public Use
  Company Number: DE-MYLANLABS-2020M1054078

PATIENT
  Age: 27 Year
  Sex: Female

DRUGS (2)
  1. VENLAFAXINE [Suspect]
     Active Substance: VENLAFAXINE HYDROCHLORIDE
     Dosage: 17.5 GRAM
  2. VENLAFAXINE [Suspect]
     Active Substance: VENLAFAXINE HYDROCHLORIDE
     Indication: PRODUCT USED FOR UNKNOWN INDICATION
     Dosage: 1 MILLIGRAM
     Route: 048

REACTIONS (30)
  - Lactic acidosis [Unknown]
  - Disseminated intravascular coagulation [Unknown]
  - Haemodynamic instability [Recovered/Resolved]
  - Sinus tachycardia [Unknown]
  - Opsoclonus myoclonus [Recovered/Resolved]
  - Intentional overdose [Unknown]
  - Hyperreflexia [Recovered/Resolved]
  - Trismus [Recovered/Resolved]
  - Multiple organ dysfunction syndrome [Recovered/Resolved]
  - Nerve injury [Unknown]
  - Acute kidney injury [Unknown]
  - Alcohol poisoning [Recovered/Resolved]
  - Left ventricular dysfunction [Recovering/Resolving]
  - Overdose [Unknown]
  - Hallucination [Recovered/Resolved]
  - Shock [Recovered/Resolved]
  - Haemorrhage [Unknown]
  - Drug abuse [Unknown]
  - Cardiogenic shock [Recovered/Resolved]
  - Septic shock [Unknown]
  - Hypotension [Unknown]
  - Electrocardiogram QT prolonged [Unknown]
  - Toxicity to various agents [Unknown]
  - Serotonin syndrome [Unknown]
  - Acute hepatic failure [Unknown]
  - Pneumonia [Recovering/Resolving]
  - Hypoglycaemia [Unknown]
  - Mydriasis [Recovered/Resolved]
  - Hypoxia [Unknown]
  - Pupils unequal [Recovered/Resolved]
